FAERS Safety Report 17483242 (Version 1)
Quarter: 2020Q1

REPORT INFORMATION
  Report Type: Spontaneous
  Country: GB (occurrence: GB)
  Receive Date: 20200302
  Receipt Date: 20200302
  Transmission Date: 20200409
  Serious: Yes (Other)
  Sender: FDA-Public Use
  Company Number: GB-ASTRAZENECA-2020SE29934

PATIENT
  Age: 71 Year
  Sex: Male
  Weight: 83 kg

DRUGS (2)
  1. DOXYCYCLINE. [Concomitant]
     Active Substance: DOXYCYCLINE
  2. OMEPRAZOLE. [Suspect]
     Active Substance: OMEPRAZOLE
     Indication: GASTRITIS
     Dosage: 20.0MG UNKNOWN
     Route: 048
     Dates: start: 20191213, end: 20191223

REACTIONS (4)
  - Chills [Unknown]
  - Nephritis [Recovered/Resolved]
  - Blood urine present [Unknown]
  - Pain [Unknown]

NARRATIVE: CASE EVENT DATE: 20191213
